FAERS Safety Report 25392093 (Version 1)
Quarter: 2025Q2

REPORT INFORMATION
  Report Type: Spontaneous
  Country: US (occurrence: US)
  Receive Date: 20250603
  Receipt Date: 20250603
  Transmission Date: 20250717
  Serious: No
  Sender: PHARMING GROUP
  Company Number: US-PHARMING-PHAUS2025000697

PATIENT

DRUGS (2)
  1. JOENJA [Suspect]
     Active Substance: LENIOLISIB PHOSPHATE
     Indication: Product used for unknown indication
  2. JOENJA [Suspect]
     Active Substance: LENIOLISIB PHOSPHATE

REACTIONS (2)
  - Nausea [Recovered/Resolved]
  - Insomnia [Unknown]
